FAERS Safety Report 24275033 (Version 1)
Quarter: 2024Q3

REPORT INFORMATION
  Report Type: Spontaneous
  Country: US (occurrence: US)
  Receive Date: 20240902
  Receipt Date: 20240902
  Transmission Date: 20241017
  Serious: No
  Sender: ABBVIE
  Company Number: US-ABBVIE-5901493

PATIENT
  Age: 38 Year
  Sex: Female
  Weight: 47 kg

DRUGS (2)
  1. SYNTHROID [Suspect]
     Active Substance: LEVOTHYROXINE SODIUM
     Indication: Thyroid disorder
     Dosage: FORM STRENGTH: 88 MCG
     Route: 048
     Dates: start: 20160101
  2. FOLIC ACID [Concomitant]
     Active Substance: FOLIC ACID
     Indication: Product used for unknown indication

REACTIONS (2)
  - Maternal exposure during pregnancy [Unknown]
  - Uterine leiomyoma [Unknown]

NARRATIVE: CASE EVENT DATE: 20240201
